FAERS Safety Report 10219022 (Version 2)
Quarter: 2014Q2

REPORT INFORMATION
  Report Type: Spontaneous
  Country: JP (occurrence: JP)
  Receive Date: 20140605
  Receipt Date: 20140630
  Transmission Date: 20141212
  Serious: Yes (Hospitalization, Other)
  Sender: FDA-Public Use
  Company Number: JP-JNJFOC-20140510858

PATIENT
  Age: 45 Year
  Sex: Male

DRUGS (7)
  1. RISPERDAL CONSTA [Suspect]
     Indication: SCHIZOPHRENIA
     Route: 030
     Dates: end: 20140603
  2. LODOPIN [Concomitant]
     Route: 048
  3. BENZALIN [Concomitant]
     Route: 048
  4. DORAL [Concomitant]
     Route: 048
  5. ESTAZOLAM [Concomitant]
     Route: 048
  6. SENNOSIDE [Concomitant]
     Route: 048
  7. NOCBIN [Concomitant]
     Route: 048

REACTIONS (4)
  - Investigation [Recovered/Resolved]
  - Dehydration [Unknown]
  - Groin pain [Unknown]
  - Gait disturbance [Unknown]
